FAERS Safety Report 9166623 (Version 3)
Quarter: 2013Q2

REPORT INFORMATION
  Report Type: Spontaneous
  Country: HU (occurrence: HU)
  Receive Date: 20130315
  Receipt Date: 20130401
  Transmission Date: 20140414
  Serious: Yes (Death, Other)
  Sender: FDA-Public Use
  Company Number: HU-ABBOTT-13P-076-1063280-00

PATIENT
  Age: 41 Year
  Sex: Male
  Weight: 89 kg

DRUGS (13)
  1. SEVOFLURANE [Suspect]
     Indication: ANAESTHESIA
     Dosage: 0.8-1 VOLUME %, VAPORIZATION
     Dates: start: 20130306, end: 20130306
  2. BUPIVACAINE [Suspect]
     Indication: LOCAL ANAESTHESIA
     Dosage: SPINAL INJECTION
     Dates: start: 20130306, end: 20130306
  3. PROPOFOL [Suspect]
     Indication: ANAESTHESIA
     Dosage: 1X200MG;2X40MG;1X1200MG
     Route: 050
     Dates: start: 20130306, end: 20130306
  4. PROPOFOL [Suspect]
     Indication: MUSCLE SPASMS
  5. PROPOFOL [Suspect]
     Indication: PROPHYLAXIS
  6. FENTANYL [Suspect]
     Indication: ANALGESIC THERAPY
     Dates: start: 20130306, end: 20130306
  7. MIDAZOLAM [Suspect]
     Indication: PRODUCT USED FOR UNKNOWN INDICATION
     Route: 042
     Dates: start: 20130306, end: 20130306
  8. MIDAZOLAM [Suspect]
     Route: 042
     Dates: start: 20130306, end: 20130306
  9. MIDAZOLAM [Suspect]
     Route: 042
     Dates: start: 20130306, end: 20130306
  10. CEFAZOLIN [Suspect]
     Indication: ANTIBIOTIC PROPHYLAXIS
     Route: 042
     Dates: start: 20130306, end: 20130306
  11. CISATRACORIUM [Suspect]
     Indication: PRODUCT USED FOR UNKNOWN INDICATION
     Route: 042
     Dates: start: 20130306, end: 20130306
  12. ATROPIN [Concomitant]
     Indication: ENDOTRACHEAL INTUBATION
     Route: 042
     Dates: start: 20130306, end: 20130306
  13. FUROSEMID [Concomitant]
     Indication: PRODUCT USED FOR UNKNOWN INDICATION
     Route: 042
     Dates: start: 20130306, end: 20130306

REACTIONS (5)
  - Muscle spasms [Fatal]
  - Pyrexia [Fatal]
  - Blood pressure decreased [Fatal]
  - Convulsion [Fatal]
  - Hyperthermia malignant [None]
